FAERS Safety Report 19052046 (Version 1)
Quarter: 2021Q1

REPORT INFORMATION
  Report Type: Spontaneous
  Country: IN (occurrence: IN)
  Receive Date: 20210324
  Receipt Date: 20210324
  Transmission Date: 20210420
  Serious: Yes (Death, Other)
  Sender: FDA-Public Use
  Company Number: IN-PFIZER INC-2021270015

PATIENT

DRUGS (1)
  1. INONZA [Suspect]
     Active Substance: INOTUZUMAB OZOGAMICIN
     Dosage: UNK, SINGLE

REACTIONS (2)
  - Pneumonia [Unknown]
  - Death [Fatal]
